FAERS Safety Report 7123678-0 (Version None)
Quarter: 2010Q4

REPORT INFORMATION
  Report Type: 
  Country: None (occurrence: None)
  Receive Date: 20101125
  Receipt Date: 20101110
  Transmission Date: 20110411
  Serious: Yes (Hospitalization, Other)
  Sender: FDA-Public Use
  Company Number: PHHY2010ZA76292

PATIENT
  Sex: Female

DRUGS (1)
  1. ACLASTA [Suspect]
     Dosage: 5 MG
     Route: 042

REACTIONS (12)
  - ABDOMINAL PAIN UPPER [None]
  - CHILLS [None]
  - COLONOSCOPY [None]
  - ENDOMETRIAL ABLATION [None]
  - ENDOSCOPY UPPER GASTROINTESTINAL TRACT [None]
  - FEELING ABNORMAL [None]
  - HERNIA [None]
  - INFLUENZA LIKE ILLNESS [None]
  - LAPAROSCOPY [None]
  - MENORRHAGIA [None]
  - PAIN [None]
  - PILOERECTION [None]
